FAERS Safety Report 18247868 (Version 1)
Quarter: 2020Q3

REPORT INFORMATION
  Report Type: Report from Study
  Country: CA (occurrence: CA)
  Receive Date: 20200909
  Receipt Date: 20200909
  Transmission Date: 20201103
  Serious: Yes (Other)
  Sender: FDA-Public Use
  Company Number: CA-JNJFOC-20190815545

PATIENT
  Age: 15 Year
  Sex: Male
  Weight: 62.7 kg

DRUGS (4)
  1. REMICADE [Suspect]
     Active Substance: INFLIXIMAB
     Route: 042
  2. METHOTREXATE. [Concomitant]
     Active Substance: METHOTREXATE
     Route: 048
  3. REMICADE [Suspect]
     Active Substance: INFLIXIMAB
     Indication: CROHN^S DISEASE
     Route: 042
     Dates: start: 20180130
  4. FOLIC ACID. [Concomitant]
     Active Substance: FOLIC ACID
     Route: 048

REACTIONS (2)
  - Crohn^s disease [Unknown]
  - Drug level decreased [Unknown]

NARRATIVE: CASE EVENT DATE: 2019
